FAERS Safety Report 14769376 (Version 6)
Quarter: 2019Q1

REPORT INFORMATION
  Report Type: Report from Study
  Country: None (occurrence: NL)
  Receive Date: 20180417
  Receipt Date: 20190212
  Transmission Date: 20190417
  Serious: Yes (Hospitalization)
  Sender: FDA-Public Use
  Company Number: NL-ABBVIE-18K-114-2311481-00

PATIENT
  Sex: Male
  Weight: 68 kg

DRUGS (8)
  1. DUODOPA [Suspect]
     Active Substance: CARBIDOPA\LEVODOPA
     Dosage: MD: 11ML, CD 2.1ML, ED: 1ML
     Route: 050
     Dates: start: 2018, end: 2018
  2. MADOPAR DISPER [Concomitant]
     Indication: PARKINSON^S DISEASE
     Route: 065
  3. DUODOPA [Suspect]
     Active Substance: CARBIDOPA\LEVODOPA
     Dosage: MORNING DOSE: 11  CONTINUOUS DOSE: 0.2 EXTRA DOSE:  1
     Route: 050
     Dates: start: 201803, end: 2018
  4. DISPER [Concomitant]
     Indication: PRODUCT USED FOR UNKNOWN INDICATION
     Route: 065
  5. DUODOPA [Suspect]
     Active Substance: CARBIDOPA\LEVODOPA
     Dosage: MORNING DOSE: 11 CONTINUOUS DOSE: 1.9 EXTRA DOSE: 1
     Route: 050
     Dates: start: 2018, end: 2018
  6. MADOPAR [Concomitant]
     Active Substance: BENSERAZIDE HYDROCHLORIDE\LEVODOPA
     Indication: PARKINSON^S DISEASE
     Route: 048
  7. DUODOPA [Suspect]
     Active Substance: CARBIDOPA\LEVODOPA
     Indication: PARKINSON^S DISEASE
     Dosage: MORNING DOSE: 11  CONTINUOUS DOSE: 2.3  EXTRA DOSE:  1
     Route: 050
     Dates: start: 20180319, end: 201803
  8. DUODOPA [Suspect]
     Active Substance: CARBIDOPA\LEVODOPA
     Dosage: REDUCED PUMP DOSES
     Route: 050
     Dates: start: 201805

REACTIONS (23)
  - Urinary tract infection [Recovered/Resolved]
  - Amnesia [Not Recovered/Not Resolved]
  - Orthostatic hypotension [Not Recovered/Not Resolved]
  - Sensitivity to weather change [Unknown]
  - Dyskinesia [Not Recovered/Not Resolved]
  - Device leakage [Unknown]
  - Tremor [Not Recovered/Not Resolved]
  - Stoma site erythema [Recovered/Resolved]
  - Musculoskeletal stiffness [Not Recovered/Not Resolved]
  - Stoma site rash [Recovered/Resolved]
  - Fall [Not Recovered/Not Resolved]
  - Gait inability [Not Recovered/Not Resolved]
  - Abnormal dreams [Not Recovered/Not Resolved]
  - Nightmare [Unknown]
  - Disturbance in attention [Not Recovered/Not Resolved]
  - Balance disorder [Not Recovered/Not Resolved]
  - Asthenia [Not Recovered/Not Resolved]
  - Stoma site discharge [Not Recovered/Not Resolved]
  - Drug effect incomplete [Not Recovered/Not Resolved]
  - Dizziness [Unknown]
  - Diarrhoea [Recovered/Resolved]
  - On and off phenomenon [Not Recovered/Not Resolved]
  - Sleep disorder [Recovered/Resolved]

NARRATIVE: CASE EVENT DATE: 2018
